FAERS Safety Report 24217456 (Version 1)
Quarter: 2024Q3

REPORT INFORMATION
  Report Type: Spontaneous
  Country: RU (occurrence: RU)
  Receive Date: 20240816
  Receipt Date: 20240816
  Transmission Date: 20241016
  Serious: Yes (Other)
  Sender: ADVANZ PHARMA
  Company Number: RU-ADVANZ PHARMA-202407006754

PATIENT

DRUGS (112)
  1. ZONISAMIDE [Suspect]
     Active Substance: ZONISAMIDE
     Indication: Partial seizures
     Dosage: MEDIAN DOSE 5 (3-8) MG/KG/DAY (ZONEGRAN)
  2. ZONISAMIDE [Suspect]
     Active Substance: ZONISAMIDE
     Indication: Idiopathic generalised epilepsy
  3. ZONISAMIDE [Suspect]
     Active Substance: ZONISAMIDE
     Indication: Petit mal epilepsy
  4. ZONISAMIDE [Suspect]
     Active Substance: ZONISAMIDE
     Indication: Juvenile absence epilepsy
  5. ZONISAMIDE [Suspect]
     Active Substance: ZONISAMIDE
     Indication: Epileptic encephalopathy
  6. ZONISAMIDE [Suspect]
     Active Substance: ZONISAMIDE
     Indication: CSWS syndrome
  7. ZONISAMIDE [Suspect]
     Active Substance: ZONISAMIDE
     Indication: Lennox-Gastaut syndrome
  8. ZONISAMIDE [Suspect]
     Active Substance: ZONISAMIDE
     Indication: Infantile spasms
  9. LEVETIRACETAM [Concomitant]
     Active Substance: LEVETIRACETAM
     Indication: Partial seizures
     Dosage: UNK
  10. LEVETIRACETAM [Concomitant]
     Active Substance: LEVETIRACETAM
     Indication: Idiopathic generalised epilepsy
  11. LEVETIRACETAM [Concomitant]
     Active Substance: LEVETIRACETAM
     Indication: Petit mal epilepsy
  12. LEVETIRACETAM [Concomitant]
     Active Substance: LEVETIRACETAM
     Indication: Juvenile absence epilepsy
  13. LEVETIRACETAM [Concomitant]
     Active Substance: LEVETIRACETAM
     Indication: Epileptic encephalopathy
  14. LEVETIRACETAM [Concomitant]
     Active Substance: LEVETIRACETAM
     Indication: CSWS syndrome
  15. LEVETIRACETAM [Concomitant]
     Active Substance: LEVETIRACETAM
     Indication: Lennox-Gastaut syndrome
  16. LEVETIRACETAM [Concomitant]
     Active Substance: LEVETIRACETAM
     Indication: Infantile spasms
  17. VALPROIC ACID [Concomitant]
     Active Substance: VALPROIC ACID
     Indication: Partial seizures
     Dosage: UNK
  18. VALPROIC ACID [Concomitant]
     Active Substance: VALPROIC ACID
     Indication: Idiopathic generalised epilepsy
  19. VALPROIC ACID [Concomitant]
     Active Substance: VALPROIC ACID
     Indication: Petit mal epilepsy
  20. VALPROIC ACID [Concomitant]
     Active Substance: VALPROIC ACID
     Indication: Juvenile absence epilepsy
  21. VALPROIC ACID [Concomitant]
     Active Substance: VALPROIC ACID
     Indication: Epileptic encephalopathy
  22. VALPROIC ACID [Concomitant]
     Active Substance: VALPROIC ACID
     Indication: CSWS syndrome
  23. VALPROIC ACID [Concomitant]
     Active Substance: VALPROIC ACID
     Indication: Lennox-Gastaut syndrome
  24. VALPROIC ACID [Concomitant]
     Active Substance: VALPROIC ACID
     Indication: Infantile spasms
  25. LAMOTRIGINE [Concomitant]
     Active Substance: LAMOTRIGINE
     Indication: Partial seizures
     Dosage: UNK
  26. LAMOTRIGINE [Concomitant]
     Active Substance: LAMOTRIGINE
     Indication: Idiopathic generalised epilepsy
  27. LAMOTRIGINE [Concomitant]
     Active Substance: LAMOTRIGINE
     Indication: Petit mal epilepsy
  28. LAMOTRIGINE [Concomitant]
     Active Substance: LAMOTRIGINE
     Indication: Juvenile absence epilepsy
  29. LAMOTRIGINE [Concomitant]
     Active Substance: LAMOTRIGINE
     Indication: Epileptic encephalopathy
  30. LAMOTRIGINE [Concomitant]
     Active Substance: LAMOTRIGINE
     Indication: CSWS syndrome
  31. LAMOTRIGINE [Concomitant]
     Active Substance: LAMOTRIGINE
     Indication: Lennox-Gastaut syndrome
  32. LAMOTRIGINE [Concomitant]
     Active Substance: LAMOTRIGINE
     Indication: Infantile spasms
  33. OXCARBAZEPINE [Concomitant]
     Active Substance: OXCARBAZEPINE
     Indication: Partial seizures
     Dosage: UNK
  34. OXCARBAZEPINE [Concomitant]
     Active Substance: OXCARBAZEPINE
     Indication: Idiopathic generalised epilepsy
  35. OXCARBAZEPINE [Concomitant]
     Active Substance: OXCARBAZEPINE
     Indication: Petit mal epilepsy
  36. OXCARBAZEPINE [Concomitant]
     Active Substance: OXCARBAZEPINE
     Indication: Juvenile absence epilepsy
  37. OXCARBAZEPINE [Concomitant]
     Active Substance: OXCARBAZEPINE
     Indication: Epileptic encephalopathy
  38. OXCARBAZEPINE [Concomitant]
     Active Substance: OXCARBAZEPINE
     Indication: CSWS syndrome
  39. OXCARBAZEPINE [Concomitant]
     Active Substance: OXCARBAZEPINE
     Indication: Lennox-Gastaut syndrome
  40. OXCARBAZEPINE [Concomitant]
     Active Substance: OXCARBAZEPINE
     Indication: Infantile spasms
  41. CARBAMAZEPINE [Concomitant]
     Active Substance: CARBAMAZEPINE
     Indication: Partial seizures
     Dosage: UNK
  42. CARBAMAZEPINE [Concomitant]
     Active Substance: CARBAMAZEPINE
     Indication: Idiopathic generalised epilepsy
  43. CARBAMAZEPINE [Concomitant]
     Active Substance: CARBAMAZEPINE
     Indication: Petit mal epilepsy
  44. CARBAMAZEPINE [Concomitant]
     Active Substance: CARBAMAZEPINE
     Indication: Juvenile absence epilepsy
  45. CARBAMAZEPINE [Concomitant]
     Active Substance: CARBAMAZEPINE
     Indication: Epileptic encephalopathy
  46. CARBAMAZEPINE [Concomitant]
     Active Substance: CARBAMAZEPINE
     Indication: CSWS syndrome
  47. CARBAMAZEPINE [Concomitant]
     Active Substance: CARBAMAZEPINE
     Indication: Lennox-Gastaut syndrome
  48. CARBAMAZEPINE [Concomitant]
     Active Substance: CARBAMAZEPINE
     Indication: Infantile spasms
  49. VIGABATRIN [Concomitant]
     Active Substance: VIGABATRIN
     Indication: Partial seizures
     Dosage: UNK
  50. VIGABATRIN [Concomitant]
     Active Substance: VIGABATRIN
     Indication: Idiopathic generalised epilepsy
  51. VIGABATRIN [Concomitant]
     Active Substance: VIGABATRIN
     Indication: Petit mal epilepsy
  52. VIGABATRIN [Concomitant]
     Active Substance: VIGABATRIN
     Indication: Juvenile absence epilepsy
  53. VIGABATRIN [Concomitant]
     Active Substance: VIGABATRIN
     Indication: Epileptic encephalopathy
  54. VIGABATRIN [Concomitant]
     Active Substance: VIGABATRIN
     Indication: CSWS syndrome
  55. VIGABATRIN [Concomitant]
     Active Substance: VIGABATRIN
     Indication: Lennox-Gastaut syndrome
  56. VIGABATRIN [Concomitant]
     Active Substance: VIGABATRIN
     Indication: Infantile spasms
  57. CLONAZEPAM [Concomitant]
     Active Substance: CLONAZEPAM
     Indication: Partial seizures
     Dosage: UNK
  58. CLONAZEPAM [Concomitant]
     Active Substance: CLONAZEPAM
     Indication: Idiopathic generalised epilepsy
  59. CLONAZEPAM [Concomitant]
     Active Substance: CLONAZEPAM
     Indication: Petit mal epilepsy
  60. CLONAZEPAM [Concomitant]
     Active Substance: CLONAZEPAM
     Indication: Juvenile absence epilepsy
  61. CLONAZEPAM [Concomitant]
     Active Substance: CLONAZEPAM
     Indication: Epileptic encephalopathy
  62. CLONAZEPAM [Concomitant]
     Active Substance: CLONAZEPAM
     Indication: CSWS syndrome
  63. CLONAZEPAM [Concomitant]
     Active Substance: CLONAZEPAM
     Indication: Lennox-Gastaut syndrome
  64. CLONAZEPAM [Concomitant]
     Active Substance: CLONAZEPAM
     Indication: Infantile spasms
  65. CLOBAZAM [Concomitant]
     Active Substance: CLOBAZAM
     Indication: Partial seizures
     Dosage: UNK
  66. CLOBAZAM [Concomitant]
     Active Substance: CLOBAZAM
     Indication: Idiopathic generalised epilepsy
  67. CLOBAZAM [Concomitant]
     Active Substance: CLOBAZAM
     Indication: Petit mal epilepsy
  68. CLOBAZAM [Concomitant]
     Active Substance: CLOBAZAM
     Indication: Juvenile absence epilepsy
  69. CLOBAZAM [Concomitant]
     Active Substance: CLOBAZAM
     Indication: Epileptic encephalopathy
  70. CLOBAZAM [Concomitant]
     Active Substance: CLOBAZAM
     Indication: CSWS syndrome
  71. CLOBAZAM [Concomitant]
     Active Substance: CLOBAZAM
     Indication: Lennox-Gastaut syndrome
  72. CLOBAZAM [Concomitant]
     Active Substance: CLOBAZAM
     Indication: Infantile spasms
  73. PHENOBARBITAL [Concomitant]
     Active Substance: PHENOBARBITAL
     Indication: Partial seizures
     Dosage: UNK
  74. PHENOBARBITAL [Concomitant]
     Active Substance: PHENOBARBITAL
     Indication: Idiopathic generalised epilepsy
  75. PHENOBARBITAL [Concomitant]
     Active Substance: PHENOBARBITAL
     Indication: Petit mal epilepsy
  76. PHENOBARBITAL [Concomitant]
     Active Substance: PHENOBARBITAL
     Indication: Juvenile absence epilepsy
  77. PHENOBARBITAL [Concomitant]
     Active Substance: PHENOBARBITAL
     Indication: Epileptic encephalopathy
  78. PHENOBARBITAL [Concomitant]
     Active Substance: PHENOBARBITAL
     Indication: CSWS syndrome
  79. PHENOBARBITAL [Concomitant]
     Active Substance: PHENOBARBITAL
     Indication: Lennox-Gastaut syndrome
  80. PHENOBARBITAL [Concomitant]
     Active Substance: PHENOBARBITAL
     Indication: Infantile spasms
  81. SULTHIAME [Concomitant]
     Active Substance: SULTHIAME
     Indication: Partial seizures
     Dosage: UNK
  82. SULTHIAME [Concomitant]
     Active Substance: SULTHIAME
     Indication: Idiopathic generalised epilepsy
  83. SULTHIAME [Concomitant]
     Active Substance: SULTHIAME
     Indication: Petit mal epilepsy
  84. SULTHIAME [Concomitant]
     Active Substance: SULTHIAME
     Indication: Juvenile absence epilepsy
  85. SULTHIAME [Concomitant]
     Active Substance: SULTHIAME
     Indication: Epileptic encephalopathy
  86. SULTHIAME [Concomitant]
     Active Substance: SULTHIAME
     Indication: CSWS syndrome
  87. SULTHIAME [Concomitant]
     Active Substance: SULTHIAME
     Indication: Lennox-Gastaut syndrome
  88. SULTHIAME [Concomitant]
     Active Substance: SULTHIAME
     Indication: Infantile spasms
  89. ETHOSUXIMIDE [Concomitant]
     Active Substance: ETHOSUXIMIDE
     Indication: Partial seizures
     Dosage: UNK
  90. ETHOSUXIMIDE [Concomitant]
     Active Substance: ETHOSUXIMIDE
     Indication: Idiopathic generalised epilepsy
  91. ETHOSUXIMIDE [Concomitant]
     Active Substance: ETHOSUXIMIDE
     Indication: Petit mal epilepsy
  92. ETHOSUXIMIDE [Concomitant]
     Active Substance: ETHOSUXIMIDE
     Indication: Juvenile absence epilepsy
  93. ETHOSUXIMIDE [Concomitant]
     Active Substance: ETHOSUXIMIDE
     Indication: Epileptic encephalopathy
  94. ETHOSUXIMIDE [Concomitant]
     Active Substance: ETHOSUXIMIDE
     Indication: CSWS syndrome
  95. ETHOSUXIMIDE [Concomitant]
     Active Substance: ETHOSUXIMIDE
     Indication: Lennox-Gastaut syndrome
  96. ETHOSUXIMIDE [Concomitant]
     Active Substance: ETHOSUXIMIDE
     Indication: Infantile spasms
  97. PERAMPANEL [Concomitant]
     Active Substance: PERAMPANEL
     Indication: Partial seizures
     Dosage: UNK
  98. PERAMPANEL [Concomitant]
     Active Substance: PERAMPANEL
     Indication: Idiopathic generalised epilepsy
  99. PERAMPANEL [Concomitant]
     Active Substance: PERAMPANEL
     Indication: Petit mal epilepsy
  100. PERAMPANEL [Concomitant]
     Active Substance: PERAMPANEL
     Indication: Juvenile absence epilepsy
  101. PERAMPANEL [Concomitant]
     Active Substance: PERAMPANEL
     Indication: Epileptic encephalopathy
  102. PERAMPANEL [Concomitant]
     Active Substance: PERAMPANEL
     Indication: CSWS syndrome
  103. PERAMPANEL [Concomitant]
     Active Substance: PERAMPANEL
     Indication: Lennox-Gastaut syndrome
  104. PERAMPANEL [Concomitant]
     Active Substance: PERAMPANEL
     Indication: Infantile spasms
  105. RUFINAMIDE [Concomitant]
     Active Substance: RUFINAMIDE
     Indication: Partial seizures
     Dosage: UNK
  106. RUFINAMIDE [Concomitant]
     Active Substance: RUFINAMIDE
     Indication: Idiopathic generalised epilepsy
  107. RUFINAMIDE [Concomitant]
     Active Substance: RUFINAMIDE
     Indication: Petit mal epilepsy
  108. RUFINAMIDE [Concomitant]
     Active Substance: RUFINAMIDE
     Indication: Juvenile absence epilepsy
  109. RUFINAMIDE [Concomitant]
     Active Substance: RUFINAMIDE
     Indication: Epileptic encephalopathy
  110. RUFINAMIDE [Concomitant]
     Active Substance: RUFINAMIDE
     Indication: CSWS syndrome
  111. RUFINAMIDE [Concomitant]
     Active Substance: RUFINAMIDE
     Indication: Lennox-Gastaut syndrome
  112. RUFINAMIDE [Concomitant]
     Active Substance: RUFINAMIDE
     Indication: Infantile spasms

REACTIONS (14)
  - Nephrolithiasis [Unknown]
  - Calculus bladder [Unknown]
  - Headache [Unknown]
  - Sleep disorder [Unknown]
  - Aggression [Unknown]
  - Lethargy [Unknown]
  - Hypoacusis [Unknown]
  - Decreased appetite [Unknown]
  - Irritability [Unknown]
  - Hypersensitivity [Unknown]
  - Somnolence [Unknown]
  - Anhidrosis [Unknown]
  - Therapy non-responder [Unknown]
  - Product use issue [Unknown]
